FAERS Safety Report 18390401 (Version 2)
Quarter: 2020Q4

REPORT INFORMATION
  Report Type: Report from Study
  Country: ES (occurrence: ES)
  Receive Date: 20201016
  Receipt Date: 20201110
  Transmission Date: 20210114
  Serious: Yes (Death)
  Sender: FDA-Public Use
  Company Number: ES-ROCHE-2694953

PATIENT
  Age: 84 Year
  Sex: Male

DRUGS (5)
  1. REMDESIVIR. [Concomitant]
     Active Substance: REMDESIVIR
     Indication: COVID-19
     Route: 042
     Dates: start: 20200921, end: 20200926
  2. METHYLPREDNISOLONE. [Concomitant]
     Active Substance: METHYLPREDNISOLONE
     Dosage: INDICATION: ANTI-IVPRESSOR THERAPY
     Route: 042
     Dates: start: 20200921, end: 20201004
  3. TOCILIZUMAB. [Suspect]
     Active Substance: TOCILIZUMAB
     Indication: COVID-19 PNEUMONIA
     Dosage: ON 22/SEP/2020, HE RECEIVED TOCILIZUMAB PRIOR TO SPONTANEOUS ABDOMINAL BLEEDING WITH HYPOVOLEMIC SHO
     Route: 042
     Dates: start: 20200921
  4. CEFTRIAXONE. [Concomitant]
     Active Substance: CEFTRIAXONE
     Indication: PROPHYLAXIS
     Dosage: INDICATION: ANTIMISERABLE PROPHYLAXIS
     Route: 042
     Dates: start: 20200917, end: 20200929
  5. ENOXAPARIN [Suspect]
     Active Substance: ENOXAPARIN
     Indication: PROPHYLAXIS
     Dosage: ANTITHYBORIC PROPHYLAXIS
     Route: 058
     Dates: start: 20200917, end: 20201004

REACTIONS (2)
  - Hypovolaemic shock [Fatal]
  - Intra-abdominal haemorrhage [Fatal]

NARRATIVE: CASE EVENT DATE: 20201004
